FAERS Safety Report 5685078-X (Version None)
Quarter: 2008Q1

REPORT INFORMATION
  Report Type: 
  Country: None (occurrence: None)
  Receive Date: 20080327
  Receipt Date: 20080320
  Transmission Date: 20080703
  Serious: Yes (Other)
  Sender: FDA-Public Use
  Company Number: CHPA2008US05198

PATIENT
  Sex: Female

DRUGS (1)
  1. GAS-X UNKNOWN FORMULA(NCH)(SIMETHICONE) UNKNOWN [Suspect]
     Dosage: ORAL
     Route: 048

REACTIONS (1)
  - DYSENTERY [None]
